FAERS Safety Report 13689722 (Version 1)
Quarter: 2017Q2

REPORT INFORMATION
  Report Type: Spontaneous
  Country: US (occurrence: US)
  Receive Date: 20170626
  Receipt Date: 20170626
  Transmission Date: 20170830
  Serious: No
  Sender: FDA-Public Use
  Company Number: US-G+W LABS-GW2017US000119

PATIENT

DRUGS (2)
  1. MOMETASONE FUROATE. [Suspect]
     Active Substance: MOMETASONE FUROATE
     Indication: RASH PRURITIC
     Dosage: 0.1 %, BID
     Route: 061
     Dates: start: 20170309, end: 201703
  2. MOMETASONE FUROATE. [Suspect]
     Active Substance: MOMETASONE FUROATE
     Indication: RASH PAPULAR

REACTIONS (5)
  - Erythema [Recovering/Resolving]
  - Pruritus [Recovering/Resolving]
  - Application site irritation [Recovering/Resolving]
  - Condition aggravated [Recovering/Resolving]
  - Pain [Recovering/Resolving]

NARRATIVE: CASE EVENT DATE: 20170309
